FAERS Safety Report 5488960-1 (Version None)
Quarter: 2007Q4

REPORT INFORMATION
  Report Type: 
  Country: None (occurrence: None)
  Receive Date: 20071016
  Receipt Date: 20071009
  Transmission Date: 20080405
  Serious: Yes (Hospitalization)
  Sender: FDA-Public Use
  Company Number: KADN20070083

PATIENT
  Age: 54 Year
  Sex: Female

DRUGS (2)
  1. KADIAN [Suspect]
     Indication: COMPLEX REGIONAL PAIN SYNDROME
     Dosage: 1 CAP Q12H,
     Dates: start: 20070628, end: 20070704
  2. ROPINIROLE HCL [Concomitant]

REACTIONS (10)
  - ABDOMINAL DISTENSION [None]
  - COMA [None]
  - DIZZINESS [None]
  - DYSKINESIA [None]
  - OVERDOSE [None]
  - SEDATION [None]
  - SYNCOPE [None]
  - URINE LEUKOCYTE ESTERASE POSITIVE [None]
  - VOMITING [None]
  - WHITE BLOOD CELLS URINE [None]
